FAERS Safety Report 4577681-5 (Version None)
Quarter: 2005Q1

REPORT INFORMATION
  Report Type: 
  Country: None (occurrence: None)
  Receive Date: 20050210
  Receipt Date: 20050208
  Transmission Date: 20050727
  Serious: Yes (Hospitalization)
  Sender: FDA-Public Use
  Company Number: NL-MERCK-0502NLD00019

PATIENT
  Age: 53 Year
  Sex: Male

DRUGS (6)
  1. VIOXX [Suspect]
     Indication: PAIN
     Route: 048
     Dates: start: 20000101, end: 20040206
  2. ASPIRIN CALCIUM [Concomitant]
     Route: 065
  3. FOSAMAX [Concomitant]
     Route: 048
  4. INSULIN ASPART [Concomitant]
     Indication: DIABETES MELLITUS
     Route: 065
  5. INSULIN HUMAN, ISOPHANE [Concomitant]
     Indication: DIABETES MELLITUS
     Route: 065
  6. [COMPOSITION UNSPECIFIED] [Concomitant]
     Indication: SLEEP DISORDER
     Route: 065

REACTIONS (6)
  - ARTHRALGIA [None]
  - CHEST PAIN [None]
  - CORONARY ARTERY DISEASE [None]
  - NECK PAIN [None]
  - NEUROPATHY [None]
  - OSTEOARTHRITIS [None]
